FAERS Safety Report 16683346 (Version 2)
Quarter: 2019Q3

REPORT INFORMATION
  Report Type: Spontaneous
  Country: CN (occurrence: CN)
  Receive Date: 20190808
  Receipt Date: 20190830
  Transmission Date: 20191004
  Serious: Yes (Other)
  Sender: FDA-Public Use
  Company Number: CN-ASTRAZENECA-2019SF12154

PATIENT
  Age: 66 Year
  Sex: Female

DRUGS (1)
  1. IRESSA [Suspect]
     Active Substance: GEFITINIB
     Indication: NON-SMALL CELL LUNG CANCER
     Route: 048

REACTIONS (8)
  - Paronychia [Recovered/Resolved]
  - Skin odour abnormal [Recovered/Resolved]
  - Drug resistance [Unknown]
  - Skin discolouration [Unknown]
  - Skin wound [Recovered/Resolved]
  - Mouth injury [Recovered/Resolved]
  - Malignant neoplasm progression [Unknown]
  - Nasal injury [Recovered/Resolved]

NARRATIVE: CASE EVENT DATE: 2019
